FAERS Safety Report 17273461 (Version 1)
Quarter: 2020Q1

REPORT INFORMATION
  Report Type: Spontaneous
  Country: US (occurrence: US)
  Receive Date: 20191224
  Receipt Date: 20191224
  Transmission Date: 20200409
  Serious: Yes (Death)
  Sender: FDA-Public Use
  Company Number: None

PATIENT
  Age: 90 Year
  Sex: Male

DRUGS (6)
  1. DOXYCYCL HYC [Concomitant]
  2. DEX [Concomitant]
     Active Substance: UNSPECIFIED INGREDIENT
  3. NEO [Concomitant]
  4. ABIRATERONE ACETATE. [Suspect]
     Active Substance: ABIRATERONE ACETATE
     Indication: PROSTATE CANCER
     Route: 048
     Dates: start: 20190711, end: 20191202
  5. XTANDI [Concomitant]
     Active Substance: ENZALUTAMIDE
  6. POLY [Concomitant]

REACTIONS (1)
  - Death [None]

NARRATIVE: CASE EVENT DATE: 20191202
